FAERS Safety Report 9486469 (Version 2)
Quarter: 2013Q4

REPORT INFORMATION
  Report Type: Spontaneous
  Country: US (occurrence: None)
  Receive Date: 20130827
  Receipt Date: 20131003
  Transmission Date: 20140711
  Serious: Yes (Hospitalization)
  Sender: FDA-Public Use
  Company Number: US-000762

PATIENT
  Age: 55 Year
  Sex: Male

DRUGS (14)
  1. GATTEX [Suspect]
     Indication: SHORT-BOWEL SYNDROME
     Dosage: FREQU: DAILY SUBCUTANEOUS
     Route: 058
     Dates: start: 20130605, end: 2013
  2. SPIRONOLACTONE [Concomitant]
  3. AMBIEN [Concomitant]
  4. TRAMADOL [Concomitant]
  5. HYDROCODONE [Concomitant]
  6. CALCIUM [Concomitant]
  7. MULTIVITAMINS [Concomitant]
  8. SIMVASTATIN [Concomitant]
  9. PROMETHAZINE [Concomitant]
  10. MAGNESIUM OXIDE [Concomitant]
  11. AMLODIPINE [Concomitant]
  12. METOPROLOL [Concomitant]
  13. ELECTROLYTE SOLUTIONS [Concomitant]
  14. SOLUTIONS FOR PARENTERAL NUTRITION [Concomitant]

REACTIONS (6)
  - Flushing [None]
  - Dizziness [None]
  - Gastroenteritis viral [None]
  - Abdominal pain [None]
  - Nausea [None]
  - Vomiting [None]
